FAERS Safety Report 18259896 (Version 2)
Quarter: 2020Q3

REPORT INFORMATION
  Report Type: Spontaneous
  Country: GB (occurrence: GB)
  Receive Date: 20200912
  Receipt Date: 20200915
  Transmission Date: 20201103
  Serious: Yes (Hospitalization)
  Sender: FDA-Public Use
  Company Number: NVSC2020GB247935

PATIENT
  Age: 77 Year
  Sex: Female

DRUGS (3)
  1. ADOPORT [Suspect]
     Active Substance: TACROLIMUS
     Indication: PRODUCT USED FOR UNKNOWN INDICATION
     Dosage: 50 MG, UNKNOWN
     Route: 065
  2. ADOPORT [Suspect]
     Active Substance: TACROLIMUS
     Dosage: 2 MG, UNKNOWN(DOSE:PM)
     Route: 065
  3. ADOPORT [Suspect]
     Active Substance: TACROLIMUS
     Dosage: 2.5 MG, UNKNOWN(DOSE:AM)
     Route: 065

REACTIONS (5)
  - Back pain [Unknown]
  - Infection [Unknown]
  - Chest pain [Unknown]
  - Dyspnoea [Unknown]
  - Pulmonary oedema [Unknown]
